FAERS Safety Report 6841548-X (Version None)
Quarter: 2010Q3

REPORT INFORMATION
  Report Type: 
  Country: None (occurrence: None)
  Receive Date: 20100714
  Receipt Date: 20070710
  Transmission Date: 20110219
  Serious: No
  Sender: FDA-Public Use
  Company Number: US-PFIZER INC-2007058409

PATIENT
  Sex: Female
  Weight: 61.4 kg

DRUGS (4)
  1. CHANTIX [Suspect]
     Indication: SMOKING CESSATION THERAPY
     Route: 048
     Dates: start: 20070603
  2. TOPROL-XL [Concomitant]
  3. VITACAL [Concomitant]
  4. VITAMINS [Concomitant]

REACTIONS (4)
  - CONSTIPATION [None]
  - DIARRHOEA [None]
  - INCREASED APPETITE [None]
  - NAUSEA [None]
